FAERS Safety Report 13800776 (Version 3)
Quarter: 2017Q4

REPORT INFORMATION
  Report Type: Spontaneous
  Country: JP (occurrence: JP)
  Receive Date: 20170727
  Receipt Date: 20171222
  Transmission Date: 20180320
  Serious: Yes (Life-Threatening, Hospitalization)
  Sender: FDA-Public Use
  Company Number: JP-ELI_LILLY_AND_COMPANY-JP201706012644

PATIENT
  Age: 82 Year
  Sex: Male
  Weight: 60 kg

DRUGS (8)
  1. LASIX [Concomitant]
     Active Substance: FUROSEMIDE
     Indication: OEDEMA
     Dosage: 10 MG, DAILY
     Route: 048
     Dates: start: 20161021, end: 20170604
  2. PROTECADIN [Concomitant]
     Active Substance: LAFUTIDINE
     Indication: GASTRITIS
     Dosage: 10 MG, BID
     Route: 048
     Dates: start: 20140921, end: 20170604
  3. ETIZOLAM [Concomitant]
     Active Substance: ETIZOLAM
     Indication: INSOMNIA
     Dosage: 0.5 MG, DAILY
     Route: 048
     Dates: start: 20161128, end: 20170604
  4. METHYCOBAL [Concomitant]
     Active Substance: METHYLCOBALAMIN
     Indication: HYPOAESTHESIA
     Dosage: 500 UG, TID
     Route: 048
     Dates: start: 20161118, end: 20170604
  5. CYRAMZA [Suspect]
     Active Substance: RAMUCIRUMAB
     Indication: GASTRIC CANCER STAGE IV
     Dosage: 60 MG, D1, 15 EVERY 4 WEEKS
     Route: 041
     Dates: start: 20160422, end: 20170602
  6. FERROUS SODIUM CITRATE [Concomitant]
     Active Substance: SODIUM FERROUS CITRATE
     Indication: ANAEMIA
     Dosage: 200 MG, DAILY
     Route: 048
     Dates: start: 20141016, end: 20170604
  7. MAGNESIUM OXIDE. [Concomitant]
     Active Substance: MAGNESIUM OXIDE
     Indication: CONSTIPATION
     Dosage: 330 MG, BID
     Route: 048
     Dates: start: 20150224, end: 20170604
  8. PACLITAXEL. [Concomitant]
     Active Substance: PACLITAXEL
     Indication: GASTRIC CANCER STAGE IV
     Dosage: 60 MG, D1, 8, 15 EVERY 4 WEEKS
     Route: 041
     Dates: start: 20160422, end: 20170602

REACTIONS (2)
  - Small intestinal perforation [Not Recovered/Not Resolved]
  - Vascular pseudoaneurysm ruptured [Not Recovered/Not Resolved]

NARRATIVE: CASE EVENT DATE: 20170605
